FAERS Safety Report 7874786-8 (Version None)
Quarter: 2011Q4

REPORT INFORMATION
  Report Type: 
  Country: None (occurrence: None)
  Receive Date: 20111014
  Receipt Date: 20110104
  Transmission Date: 20120403
  Serious: Yes (Other)
  Sender: FDA-Public Use
  Company Number: 1000018027

PATIENT
  Sex: Male

DRUGS (2)
  1. INVEGA [Suspect]
     Dosage: ORAL
     Route: 048
  2. LEXAPRO [Suspect]
     Indication: ORAL DISORDER

REACTIONS (4)
  - WEIGHT INCREASED [None]
  - DEPRESSION [None]
  - SOMNOLENCE [None]
  - SUICIDAL IDEATION [None]
